FAERS Safety Report 22101053 (Version 1)
Quarter: 2023Q1

REPORT INFORMATION
  Report Type: Spontaneous
  Country: CA (occurrence: CA)
  Receive Date: 20230316
  Receipt Date: 20230316
  Transmission Date: 20230418
  Serious: Yes (Other)
  Sender: FDA-Public Use
  Company Number: CA-002147023-NVSC2023CA054938

PATIENT
  Age: 54 Year
  Sex: Male

DRUGS (1)
  1. METHOTREXATE [Suspect]
     Active Substance: METHOTREXATE
     Indication: Product used for unknown indication
     Dosage: UNK
     Route: 065

REACTIONS (8)
  - Back pain [Unknown]
  - Cardiac arrest [Unknown]
  - Eye haemorrhage [Unknown]
  - Heart rate increased [Unknown]
  - Neck pain [Unknown]
  - Pulmonary mass [Unknown]
  - Stress [Unknown]
  - COVID-19 [Unknown]
